FAERS Safety Report 23056531 (Version 3)
Quarter: 2024Q1

REPORT INFORMATION
  Report Type: Spontaneous
  Country: US (occurrence: US)
  Receive Date: 20231011
  Receipt Date: 20240102
  Transmission Date: 20240410
  Serious: Yes (Hospitalization, Other)
  Sender: FDA-Public Use
  Company Number: US-BRISTOL-MYERS SQUIBB COMPANY-2023-143567

PATIENT
  Age: 74 Year
  Sex: Male
  Weight: 126.1 kg

DRUGS (3)
  1. REVLIMID [Suspect]
     Active Substance: LENALIDOMIDE
     Indication: Plasma cell myeloma
     Dosage: 3WKSON,1WKOFF
     Route: 048
  2. REVLIMID [Suspect]
     Active Substance: LENALIDOMIDE
     Dosage: 14D ON 7D OFF
     Route: 048
     Dates: start: 20230901
  3. REVLIMID [Suspect]
     Active Substance: LENALIDOMIDE
     Dosage: ONE WEEK ON ONE WEEK OFF
     Route: 048

REACTIONS (5)
  - Haemoglobin decreased [Unknown]
  - Dehydration [Unknown]
  - Renal injury [Unknown]
  - Cardiac failure congestive [Recovering/Resolving]
  - Off label use [Unknown]
